FAERS Safety Report 18866884 (Version 1)
Quarter: 2021Q1

REPORT INFORMATION
  Report Type: Spontaneous
  Country: US (occurrence: US)
  Receive Date: 20210209
  Receipt Date: 20210209
  Transmission Date: 20210420
  Serious: Yes (Other)
  Sender: FDA-Public Use
  Company Number: None

PATIENT
  Age: 53 Year
  Sex: Male
  Weight: 183 kg

DRUGS (8)
  1. DIMETHYL FUMARATE [Suspect]
     Active Substance: DIMETHYL FUMARATE
     Indication: MULTIPLE SCLEROSIS
     Route: 048
     Dates: start: 20201110
  2. MELOXICAM. [Concomitant]
     Active Substance: MELOXICAM
  3. CHOLESTYRAMINE LIGHT [Concomitant]
     Active Substance: CHOLESTYRAMINE
  4. IBUPROFEN. [Concomitant]
     Active Substance: IBUPROFEN
  5. LOSARTAN?HYDROCHLOROTHIAZIDE [Concomitant]
     Active Substance: HYDROCHLOROTHIAZIDE\LOSARTAN
  6. TRAMADOL. [Concomitant]
     Active Substance: TRAMADOL
  7. NOTRIPTYLINE [Concomitant]
  8. GABAPENTIN. [Concomitant]
     Active Substance: GABAPENTIN

REACTIONS (3)
  - Product substitution issue [None]
  - Pain in extremity [None]
  - Pain [None]
